FAERS Safety Report 15228748 (Version 1)
Quarter: 2018Q3

REPORT INFORMATION
  Report Type: Spontaneous
  Country: US (occurrence: US)
  Receive Date: 20180706
  Receipt Date: 20180706
  Transmission Date: 20181010
  Serious: No
  Sender: FDA-Public Use
  Company Number: None

PATIENT
  Age: 49 Year
  Sex: Female
  Weight: 63 kg

DRUGS (18)
  1. AZITHROMYCIN 500 MG TABLETS [Suspect]
     Active Substance: AZITHROMYCIN
     Indication: SINUSITIS
     Dosage: ?          QUANTITY:6 TABLET(S);?
     Dates: start: 20180629, end: 20180704
  2. AZITHROMYCIN 500 MG TABLETS [Suspect]
     Active Substance: AZITHROMYCIN
     Indication: INFECTION PROPHYLAXIS
     Dosage: ?          QUANTITY:6 TABLET(S);?
     Dates: start: 20180705, end: 20180706
  3. SINGULAIR [Concomitant]
     Active Substance: MONTELUKAST SODIUM
  4. ZYRTEC?D ALLERGY AND CONGESTION [Concomitant]
     Active Substance: CETIRIZINE HYDROCHLORIDE\PSEUDOEPHEDRINE HYDROCHLORIDE
  5. PROBIOTIC [Concomitant]
     Active Substance: PROBIOTICS NOS
  6. VITAMIN B [Concomitant]
     Active Substance: VITAMIN B
  7. VITAMIN D [Concomitant]
     Active Substance: CHOLECALCIFEROL
  8. MULTI VITAMIN [Concomitant]
     Active Substance: VITAMINS
  9. OCUVITE [Concomitant]
     Active Substance: VITAMINS
  10. AZITHROMYCIN 500 MG TABLETS [Suspect]
     Active Substance: AZITHROMYCIN
     Indication: VIRAL INFECTION
     Dosage: ?          QUANTITY:6 TABLET(S);?
     Dates: start: 20180705, end: 20180706
  11. TRIAMTERENE. [Concomitant]
     Active Substance: TRIAMTERENE
  12. CALCIUM [Concomitant]
     Active Substance: CALCIUM
  13. VITAMIN C [Concomitant]
     Active Substance: ASCORBIC ACID
  14. SEREVENT DISKUS [Concomitant]
     Active Substance: SALMETEROL XINAFOATE
  15. LOSARTIN [Concomitant]
     Active Substance: LOSARTAN
  16. VITAMIN E [Concomitant]
     Active Substance: .ALPHA.-TOCOPHEROL
  17. LUTEIN [Concomitant]
     Active Substance: LUTEIN
  18. IRON [Concomitant]
     Active Substance: IRON

REACTIONS (3)
  - Ageusia [None]
  - Deafness [None]
  - Tinnitus [None]

NARRATIVE: CASE EVENT DATE: 20180705
